FAERS Safety Report 10230570 (Version 1)
Quarter: 2014Q2

REPORT INFORMATION
  Report Type: Spontaneous
  Country: US (occurrence: US)
  Receive Date: 20140611
  Receipt Date: 20140611
  Transmission Date: 20141212
  Serious: No
  Sender: FDA-Public Use
  Company Number: US-INCYTE CORPORATION-2014IN001204

PATIENT
  Sex: Female

DRUGS (1)
  1. JAKAFI [Suspect]
     Indication: MYELOFIBROSIS
     Dosage: 15 MG, UNK
     Route: 048
     Dates: start: 20120524

REACTIONS (6)
  - Pyrexia [Unknown]
  - Tremor [Unknown]
  - Asthenia [Unknown]
  - Chills [Unknown]
  - Discomfort [Unknown]
  - Fatigue [Unknown]
